FAERS Safety Report 9238738 (Version 1)
Quarter: 2013Q2

REPORT INFORMATION
  Report Type: Other
  Country: DK (occurrence: DK)
  Receive Date: 20130418
  Receipt Date: 20130418
  Transmission Date: 20140414
  Serious: Yes (Hospitalization)
  Sender: FDA-Public Use
  Company Number: DK-BRISTOL-MYERS SQUIBB COMPANY-18764860

PATIENT
  Age: 74 Year
  Sex: Male

DRUGS (3)
  1. IBUPROFEN [Suspect]
  2. WARFARIN SODIUM [Interacting]
     Indication: ATRIAL FIBRILLATION
  3. TRAMADOL [Interacting]
     Indication: BACK PAIN

REACTIONS (2)
  - Drug interaction [Unknown]
  - International normalised ratio increased [Unknown]
